FAERS Safety Report 14677070 (Version 18)
Quarter: 2020Q3

REPORT INFORMATION
  Report Type: Report from Study
  Country: US (occurrence: US)
  Receive Date: 20180324
  Receipt Date: 20200806
  Transmission Date: 20201102
  Serious: Yes (Other)
  Sender: FDA-Public Use
  Company Number: US-TESARO, INC-US-2018TSO00239

PATIENT
  Age: 68 Year
  Sex: Female

DRUGS (13)
  1. NIRAPARIB [Suspect]
     Active Substance: NIRAPARIB
     Dosage: 200 MG, QD
  2. ZOFRAN [Suspect]
     Active Substance: ONDANSETRON HYDROCHLORIDE
     Indication: PRODUCT USED FOR UNKNOWN INDICATION
     Dosage: UNK
     Route: 065
  3. NIRAPARIB [Suspect]
     Active Substance: NIRAPARIB
     Indication: OVARIAN CANCER
     Dosage: 300 MG, QD
     Route: 048
     Dates: start: 20171230, end: 20180201
  4. PHENERGAN [Concomitant]
     Active Substance: PROMETHAZINE HYDROCHLORIDE
     Indication: PRODUCT USED FOR UNKNOWN INDICATION
     Dosage: UNK, BID
  5. COLACE [Concomitant]
     Active Substance: DOCUSATE SODIUM
     Indication: PRODUCT USED FOR UNKNOWN INDICATION
     Dosage: UNK
  6. NIRAPARIB [Suspect]
     Active Substance: NIRAPARIB
     Dosage: 200 MG, QPM WITH FOOD
     Route: 048
     Dates: start: 2018
  7. NIRAPARIB [Suspect]
     Active Substance: NIRAPARIB
     Dosage: 200 MG, QD
  8. NIRAPARIB [Suspect]
     Active Substance: NIRAPARIB
     Dosage: 100 MG, QD
     Dates: start: 2018, end: 20180627
  9. NIRAPARIB [Suspect]
     Active Substance: NIRAPARIB
     Dosage: 200 MG, QD
     Route: 048
  10. NIRAPARIB [Suspect]
     Active Substance: NIRAPARIB
     Dosage: 200 MG, QD
     Route: 048
     Dates: start: 20180202, end: 2018
  11. NIRAPARIB [Suspect]
     Active Substance: NIRAPARIB
     Dosage: 200 MG, QD
     Route: 048
  12. AMITIZA [Concomitant]
     Active Substance: LUBIPROSTONE
     Indication: PRODUCT USED FOR UNKNOWN INDICATION
     Dosage: UNK
  13. NIRAPARIB [Suspect]
     Active Substance: NIRAPARIB
     Dosage: 200 MG PM WITH DINNER

REACTIONS (48)
  - Hypophagia [Not Recovered/Not Resolved]
  - Haemoglobin decreased [Recovered/Resolved]
  - Feeling abnormal [Unknown]
  - Adjustment disorder with depressed mood [Not Recovered/Not Resolved]
  - Eye disorder [Not Recovered/Not Resolved]
  - Carbohydrate antigen 125 increased [Unknown]
  - Incorrect dose administered [Unknown]
  - Dysphonia [Unknown]
  - Eastern Cooperative Oncology Group performance status worsened [Unknown]
  - Drug intolerance [Unknown]
  - Product dose omission issue [Recovered/Resolved]
  - Appetite disorder [Recovered/Resolved]
  - Fatigue [Not Recovered/Not Resolved]
  - Memory impairment [Not Recovered/Not Resolved]
  - Bladder spasm [Unknown]
  - Drug monitoring procedure not performed [Unknown]
  - Night sweats [Unknown]
  - Abdominal distension [Recovered/Resolved]
  - Depression [Not Recovered/Not Resolved]
  - Diarrhoea [Unknown]
  - Decreased appetite [Recovering/Resolving]
  - Cognitive disorder [Not Recovered/Not Resolved]
  - Condition aggravated [Not Recovered/Not Resolved]
  - Joint injury [Recovered/Resolved]
  - Impaired driving ability [Unknown]
  - Neuropathy peripheral [Not Recovered/Not Resolved]
  - Disturbance in attention [Not Recovered/Not Resolved]
  - Visual impairment [Unknown]
  - Depressed mood [Unknown]
  - Gastroenteritis viral [Unknown]
  - Arthralgia [Not Recovered/Not Resolved]
  - Blindness [Unknown]
  - Food craving [Unknown]
  - Haematocrit decreased [Recovered/Resolved]
  - Headache [Recovered/Resolved]
  - Nausea [Not Recovered/Not Resolved]
  - Constipation [Unknown]
  - Dehydration [Unknown]
  - Rash [Recovered/Resolved]
  - Back pain [Not Recovered/Not Resolved]
  - Social problem [Unknown]
  - Lower respiratory tract infection [Recovered/Resolved]
  - Macular degeneration [Not Recovered/Not Resolved]
  - Anaemia [Recovering/Resolving]
  - Urinary tract infection [Recovered/Resolved]
  - Blood potassium decreased [Recovered/Resolved]
  - Vomiting [Unknown]
  - Asthenia [Unknown]

NARRATIVE: CASE EVENT DATE: 20160328
